FAERS Safety Report 16204886 (Version 1)
Quarter: 2019Q2

REPORT INFORMATION
  Report Type: Spontaneous
  Country: US (occurrence: US)
  Receive Date: 20190416
  Receipt Date: 20190416
  Transmission Date: 20190711
  Serious: No
  Sender: FDA-Public Use
  Company Number: US-009507513-1904USA001660

PATIENT
  Age: 36 Year
  Sex: Female
  Weight: 57.14 kg

DRUGS (1)
  1. NEXPLANON [Suspect]
     Active Substance: ETONOGESTREL
     Indication: CONTRACEPTION
     Dosage: 1 IMPLANTM LEFT
     Route: 059
     Dates: start: 20180409

REACTIONS (2)
  - Adverse event [Not Recovered/Not Resolved]
  - Implant site reaction [Not Recovered/Not Resolved]

NARRATIVE: CASE EVENT DATE: 2018
